FAERS Safety Report 21745027 (Version 1)
Quarter: 2022Q4

REPORT INFORMATION
  Report Type: Spontaneous
  Country: US (occurrence: US)
  Receive Date: 20221219
  Receipt Date: 20221219
  Transmission Date: 20230112
  Serious: Yes (Other)
  Sender: FDA-Public Use
  Company Number: US-BoehringerIngelheim-2022-BI-208594

PATIENT
  Age: 82 Year
  Sex: Female
  Weight: 45.4 kg

DRUGS (4)
  1. OFEV [Suspect]
     Active Substance: NINTEDANIB
     Indication: Product used for unknown indication
  2. TYVASO DPI [Suspect]
     Active Substance: TREPROSTINIL
     Indication: Pulmonary arterial hypertension
     Dosage: INHALATION
     Dates: start: 20221123
  3. TYVASO DPI [Suspect]
     Active Substance: TREPROSTINIL
     Dosage: INHALATION
  4. TADALAFIL [Concomitant]
     Active Substance: TADALAFIL
     Indication: Product used for unknown indication

REACTIONS (9)
  - Epistaxis [Unknown]
  - Renal impairment [Unknown]
  - Insomnia [Unknown]
  - Raynaud^s phenomenon [Unknown]
  - Headache [Unknown]
  - Feeling abnormal [Unknown]
  - Diarrhoea [Not Recovered/Not Resolved]
  - Cough [Unknown]
  - Fatigue [Unknown]

NARRATIVE: CASE EVENT DATE: 20220101
